FAERS Safety Report 7324578-3 (Version None)
Quarter: 2011Q1

REPORT INFORMATION
  Report Type: 
  Country: None (occurrence: None)
  Receive Date: 20110301
  Receipt Date: 20110224
  Transmission Date: 20110831
  Serious: Yes (Life-Threatening, Hospitalization, Other)
  Sender: FDA-Public Use
  Company Number: JP-PFIZER INC-2010110593

PATIENT
  Age: 48 Year
  Sex: Female
  Weight: 42.3 kg

DRUGS (13)
  1. PRIMPERAN TAB [Concomitant]
     Route: 048
  2. PAXIL [Concomitant]
     Route: 048
  3. EVAMYL [Concomitant]
     Dosage: 2 MG, 1X/DAY
     Route: 048
     Dates: start: 20100409
  4. SUNITINIB MALATE [Suspect]
     Indication: PHAEOCHROMOCYTOMA MALIGNANT
     Dosage: 25 MG, 1X/DAY
     Route: 048
     Dates: start: 20090918, end: 20100719
  5. CARDENALIN [Concomitant]
     Route: 048
     Dates: start: 20090919
  6. MAGNESIUM OXIDE [Concomitant]
     Route: 048
  7. MIRTAZAPINE [Concomitant]
     Dosage: 15 MG, 1X/DAY
     Route: 048
  8. LAFUTIDINE [Concomitant]
     Dosage: 10 MG, 1X/DAY
     Route: 048
     Dates: start: 20100609
  9. RHYTHMY [Concomitant]
     Route: 048
  10. AMOBAN [Concomitant]
     Dosage: 7.5 MG, 1X/DAY
     Route: 048
     Dates: start: 20100409
  11. HIRUDOID [Concomitant]
     Route: 062
  12. MS CONTIN [Concomitant]
     Route: 048
  13. NOVAMIN [Concomitant]
     Route: 048

REACTIONS (5)
  - NAUSEA [None]
  - LEUKOPENIA [None]
  - DECREASED APPETITE [None]
  - THROMBOCYTOPENIA [None]
  - MALAISE [None]
